FAERS Safety Report 14876307 (Version 1)
Quarter: 2018Q2

REPORT INFORMATION
  Report Type: Spontaneous
  Country: IT (occurrence: IT)
  Receive Date: 20180510
  Receipt Date: 20180510
  Transmission Date: 20180711
  Serious: Yes (Other)
  Sender: FDA-Public Use
  Company Number: IT-PFIZER INC-2018187453

PATIENT
  Age: 51 Year
  Sex: Female

DRUGS (5)
  1. FEMARA [Suspect]
     Active Substance: LETROZOLE
     Indication: BREAST CANCER
     Dosage: 1 DF, 1X/DAY
     Dates: start: 20170619, end: 20170922
  2. PACLITAXEL. [Suspect]
     Active Substance: PACLITAXEL
     Indication: BREAST CANCER
     Dosage: 11 ADMINISTRATIONS
     Dates: start: 20170331, end: 20170616
  3. SALINE /00075401/ [Concomitant]
     Active Substance: SODIUM CHLORIDE
     Dosage: UNK
  4. TRASTUZUMAB. [Suspect]
     Active Substance: TRASTUZUMAB
     Indication: BREAST CANCER
     Dosage: 1 UNK, 1X3WEEKS
     Route: 058
     Dates: start: 20170407, end: 20170922
  5. TRASTUZUMAB. [Suspect]
     Active Substance: TRASTUZUMAB
     Dosage: 1 UNK, 1X3WEEKS
     Route: 058
     Dates: start: 20171023

REACTIONS (2)
  - Transaminases increased [Recovering/Resolving]
  - Injection site discolouration [Not Recovered/Not Resolved]

NARRATIVE: CASE EVENT DATE: 20170922
